FAERS Safety Report 25888150 (Version 1)
Quarter: 2025Q4

REPORT INFORMATION
  Report Type: Spontaneous
  Country: EU (occurrence: EU)
  Receive Date: 20251007
  Receipt Date: 20251007
  Transmission Date: 20260117
  Serious: Yes (Other)
  Sender: CELLTRION
  Company Number: None

PATIENT

DRUGS (3)
  1. INFLIXIMAB [Suspect]
     Active Substance: INFLIXIMAB
     Indication: Product used for unknown indication
     Dosage: 33.8 ML / 558MG IN 250MLS NORMAL SALINE. 33.8MLS ADMINISTEREDEXPIRES FEB/2029
     Route: 042
     Dates: start: 20250612
  2. CHLORPHENIRAMINE MALEATE [Concomitant]
     Active Substance: CHLORPHENIRAMINE MALEATE
     Dosage: 10 MG
     Route: 042
     Dates: start: 20250612, end: 20250612
  3. HYDROCORTISONE (GENERIC) [Concomitant]
     Dosage: 100 MG
     Route: 042
     Dates: start: 20250612, end: 20250612

REACTIONS (1)
  - Back pain [Recovered/Resolved]

NARRATIVE: CASE EVENT DATE: 20250612
